FAERS Safety Report 15839338 (Version 3)
Quarter: 2022Q1

REPORT INFORMATION
  Report Type: Spontaneous
  Country: CA (occurrence: None)
  Receive Date: 20190117
  Receipt Date: 20220324
  Transmission Date: 20220424
  Serious: Yes (Other)
  Sender: FDA-Public Use
  Company Number: CA-EISAI MEDICAL RESEARCH-EC-2019-050484

PATIENT
  Age: 10 Month
  Sex: Female

DRUGS (14)
  1. BANZEL [Suspect]
     Active Substance: RUFINAMIDE
     Indication: Seizure
     Dosage: DOSE AND FREQUENCY UNKNOWN
     Route: 065
  2. FYCOMPA [Suspect]
     Active Substance: PERAMPANEL
     Indication: Seizure
     Dosage: DOSE AND FREQUENCY UNKNOWN
     Route: 065
  3. CANNABIDIOL [Suspect]
     Active Substance: CANNABIDIOL
     Indication: Seizure
     Dosage: DOSE AND FREQUENCY UNKNOWN
     Route: 065
  4. CLOBAZAM [Suspect]
     Active Substance: CLOBAZAM
     Indication: Seizure
     Dosage: DOSE AND FREQUENCY UNKNOWN
     Route: 065
  5. LEVETIRACETAM [Suspect]
     Active Substance: LEVETIRACETAM
     Indication: Seizure
     Dosage: DOSE AND FREQUENCY UNKNOWN
     Route: 065
  6. PHENOBARBITAL [Suspect]
     Active Substance: PHENOBARBITAL
     Indication: Seizure
     Dosage: DOSE AND FREQUENCY UNKNOWN
     Route: 065
  7. PHENYTOIN [Suspect]
     Active Substance: PHENYTOIN
     Indication: Seizure
     Dosage: DOSE AND FREQUENCY UNKNOWN
     Route: 065
  8. PREDNISOLONE [Suspect]
     Active Substance: PREDNISOLONE
     Indication: Seizure
     Dosage: DOSE AND FREQUENCY UNKNOWN
     Route: 065
  9. TOPIRAMATE [Suspect]
     Active Substance: TOPIRAMATE
     Indication: Seizure
     Dosage: DOSE AND FREQUENCY UNKNOWN
     Route: 065
  10. VALPROIC ACID [Suspect]
     Active Substance: VALPROIC ACID
     Indication: Seizure
     Dosage: DOSE AND FREQUENCY UNKNOWN
     Route: 065
  11. VIGABATRIN [Suspect]
     Active Substance: VIGABATRIN
     Indication: Seizure
     Dosage: DOSE AND FREQUENCY UNKNOWN
     Route: 048
  12. CARBAMAZEPINE [Suspect]
     Active Substance: CARBAMAZEPINE
     Indication: Seizure
     Dosage: DOSE AND FREQUENCY UNKNOWN
     Route: 065
  13. PYRIDOXAL PHOSPHATE ANHYDROUS [Suspect]
     Active Substance: PYRIDOXAL PHOSPHATE ANHYDROUS
     Indication: Seizure
     Dosage: DOSE AND FREQUENCY UNKNOWN
     Route: 065
  14. VITAMIN B [Suspect]
     Active Substance: VITAMIN B
     Indication: Seizure
     Dosage: DOSE AND FREQUENCY UNKNOWN
     Route: 065

REACTIONS (1)
  - Drug resistance [Unknown]
